FAERS Safety Report 8317626 (Version 5)
Quarter: 2013Q3

REPORT INFORMATION
  Report Type: Report from Study
  Country: PE (occurrence: PE)
  Receive Date: 20120102
  Receipt Date: 20130718
  Transmission Date: 20140515
  Serious: Yes (Hospitalization, Other)
  Sender: FDA-Public Use
  Company Number: PE-BRISTOL-MYERS SQUIBB COMPANY-15983224

PATIENT
  Age: 74 Year
  Sex: Male

DRUGS (8)
  1. METFORMIN HCL [Suspect]
     Indication: DIABETES MELLITUS
     Dates: end: 20100923
  2. GLIMEPIRIDE [Suspect]
     Indication: DIABETES MELLITUS
     Dosage: END DATE 01FEB11 2 MG.4 MG: 02FEB11-16AUG11.16AUG11-UNK
     Dates: start: 20110202
  3. PLACEBO [Suspect]
     Indication: TYPE 2 DIABETES MELLITUS
     Dosage: INTERRUPTED ON 13AUG2011,RESTAT ON 29AUG11,INTER ON 18NOV11,RESTAT ON 07DEC11
     Dates: start: 20100903
  4. VELCADE [Suspect]
     Indication: PLASMACYTOMA
  5. ASPIRIN [Concomitant]
     Dosage: ALSO TAKEN ON 02SEP10, 22MAR11.
     Dates: start: 20101123
  6. ALLOPURINOL [Concomitant]
     Indication: HYPERURICAEMIA
     Route: 048
  7. IRON [Concomitant]
     Indication: IRON DEFICIENCY ANAEMIA
     Route: 048
     Dates: start: 20120514
  8. VITAMIN B12 [Concomitant]
     Indication: IRON DEFICIENCY ANAEMIA
     Route: 048
     Dates: start: 20120514

REACTIONS (2)
  - Deep vein thrombosis [Recovered/Resolved]
  - Oesophageal candidiasis [Recovered/Resolved]
